FAERS Safety Report 18202924 (Version 1)
Quarter: 2020Q3

REPORT INFORMATION
  Report Type: Spontaneous
  Country: PR (occurrence: PR)
  Receive Date: 20200827
  Receipt Date: 20200827
  Transmission Date: 20201103
  Serious: Yes (Other)
  Sender: FDA-Public Use
  Company Number: PR-PFIZER INC-2020327988

PATIENT
  Age: 82 Year
  Sex: Female
  Weight: 78 kg

DRUGS (1)
  1. LIPITOR [Suspect]
     Active Substance: ATORVASTATIN CALCIUM
     Dosage: 50 MG, DAILY
     Dates: start: 201905

REACTIONS (22)
  - Tremor [Recovered/Resolved]
  - Nasal congestion [Not Recovered/Not Resolved]
  - Amnesia [Recovered/Resolved]
  - Confusional state [Recovered/Resolved]
  - Fatigue [Recovered/Resolved]
  - Urinary tract infection [Recovered/Resolved]
  - Pruritus [Recovered/Resolved]
  - Extraocular muscle paresis [Unknown]
  - Visual impairment [Unknown]
  - Joint swelling [Recovered/Resolved]
  - Dry eye [Unknown]
  - Eyelids pruritus [Unknown]
  - Rhinorrhoea [Unknown]
  - Balance disorder [Recovered/Resolved]
  - Lacrimation increased [Unknown]
  - Eyelid disorder [Unknown]
  - Eye disorder [Not Recovered/Not Resolved]
  - Peripheral swelling [Recovered/Resolved]
  - Diplopia [Unknown]
  - Weight decreased [Recovered/Resolved]
  - Dyspnoea [Recovered/Resolved]
  - Alopecia [Recovered/Resolved]

NARRATIVE: CASE EVENT DATE: 2020
